FAERS Safety Report 5583948-4 (Version None)
Quarter: 2008Q1

REPORT INFORMATION
  Report Type: 
  Country: None (occurrence: None)
  Receive Date: 20080103
  Receipt Date: 20080103
  Transmission Date: 20080703
  Serious: Yes (Hospitalization)
  Sender: FDA-Public Use
  Company Number: None

PATIENT
  Age: 73 Year
  Sex: Female

DRUGS (3)
  1. ALENDRONATE SODIUM [Suspect]
     Indication: OSTEOPOROSIS
  2. CELECOXIB [Suspect]
     Indication: INFLAMMATION
  3. IBUPROFEN [Suspect]

REACTIONS (15)
  - ANAEMIA [None]
  - FALL [None]
  - GASTRIC PERFORATION [None]
  - HEAD INJURY [None]
  - HYPOTENSION [None]
  - LOSS OF CONSCIOUSNESS [None]
  - MALLORY-WEISS SYNDROME [None]
  - OBSTRUCTION GASTRIC [None]
  - OCCULT BLOOD POSITIVE [None]
  - PNEUMOMEDIASTINUM [None]
  - POST PROCEDURAL COMPLICATION [None]
  - POSTOPERATIVE RENAL FAILURE [None]
  - RESPIRATORY FAILURE [None]
  - SYNCOPE [None]
  - ULCER [None]
